FAERS Safety Report 6163969-3 (Version None)
Quarter: 2009Q2

REPORT INFORMATION
  Report Type: 
  Country: None (occurrence: None)
  Receive Date: 20090422
  Receipt Date: 20090410
  Transmission Date: 20091009
  Serious: Yes (Death, Life-Threatening, Other)
  Sender: FDA-Public Use
  Company Number: JP-PFIZER INC-2009163827

PATIENT

DRUGS (17)
  1. ZYVOX [Suspect]
     Indication: STAPHYLOCOCCAL SEPSIS
     Dosage: 600 MG, 2X/DAY
     Route: 042
     Dates: start: 20080626, end: 20080728
  2. PREDONINE [Concomitant]
  3. TAKEPRON [Concomitant]
  4. DAI-KENCHU-TO [Concomitant]
  5. SIGMART [Concomitant]
  6. ASPIRIN [Concomitant]
  7. MICARDIS [Concomitant]
  8. AZOSEMIDE [Concomitant]
  9. ARTIST [Concomitant]
  10. AMINO ACIDS/CARBOHYDRATES/MINERALS/VITAMINS, [Concomitant]
     Dates: start: 20080630
  11. PANTHENOL [Concomitant]
     Dates: start: 20080607
  12. PRIMPERAN [Concomitant]
     Dates: start: 20080607
  13. INTRALIPID 10% [Concomitant]
     Dates: start: 20080607
  14. POLARAMINE [Concomitant]
     Dates: start: 20080619
  15. PANABATE [Concomitant]
     Dates: start: 20080626
  16. ALLELOCK [Concomitant]
  17. NOVORAPID [Concomitant]

REACTIONS (3)
  - ANAEMIA [None]
  - CEREBRAL HAEMORRHAGE [None]
  - DYSGEUSIA [None]
